FAERS Safety Report 17831083 (Version 1)
Quarter: 2020Q2

REPORT INFORMATION
  Report Type: Spontaneous
  Country: DE (occurrence: DE)
  Receive Date: 20200527
  Receipt Date: 20200527
  Transmission Date: 20200714
  Serious: Yes (Hospitalization, Other)
  Sender: FDA-Public Use
  Company Number: DE-009507513-2005DEU007825

PATIENT
  Sex: Female

DRUGS (3)
  1. GONAL-F [Suspect]
     Active Substance: FOLLITROPIN
  2. OVITRELLE [Suspect]
     Active Substance: CHORIOGONADOTROPIN ALFA
  3. ORGALUTRAN [Suspect]
     Active Substance: GANIRELIX ACETATE

REACTIONS (3)
  - Endometriosis [Recovered/Resolved]
  - Ovarian haemorrhage [Recovered/Resolved]
  - Ovarian adhesion [Recovered/Resolved]
